FAERS Safety Report 8563874-9 (Version None)
Quarter: 2012Q3

REPORT INFORMATION
  Report Type: 
  Country: None (occurrence: None)
  Receive Date: 20120718
  Receipt Date: 20120706
  Transmission Date: 20120928
  Serious: Yes (Hospitalization, Other)
  Sender: FDA-Public Use
  Company Number: 2012032393

PATIENT
  Sex: Male
  Weight: 104.7809 kg

DRUGS (6)
  1. CINRYZE [Suspect]
     Indication: HEREDITARY ANGIOEDEMA
     Dosage: (1000 IU QOD, ??-OCT-2011)
  2. LOVENOX [Concomitant]
  3. BERINERT [Suspect]
     Indication: HEREDITARY ANGIOEDEMA
     Dosage: (??-MAY-2012 INTRAVENOUS (NOT OTHERWISE SPECIFIED))
     Route: 042
  4. INSULIN (INSULIN) [Concomitant]
  5. COUMADIN [Concomitant]
  6. CEFAZOLIN (CEFAZOLIN) [Concomitant]

REACTIONS (15)
  - VENOUS THROMBOSIS [None]
  - OEDEMA PERIPHERAL [None]
  - HEADACHE [None]
  - ERYTHEMA [None]
  - FEELING HOT [None]
  - PAIN IN EXTREMITY [None]
  - OFF LABEL USE [None]
  - TREATMENT NONCOMPLIANCE [None]
  - PRODUCT SUBSTITUTION ISSUE [None]
  - DRUG EFFECT DECREASED [None]
  - STAPHYLOCOCCAL INFECTION [None]
  - PHARYNGEAL OEDEMA [None]
  - THROMBOSIS [None]
  - DEVICE RELATED INFECTION [None]
  - ABDOMINAL DISTENSION [None]
